FAERS Safety Report 14661993 (Version 2)
Quarter: 2018Q2

REPORT INFORMATION
  Report Type: Spontaneous
  Country: NZ (occurrence: NZ)
  Receive Date: 20180320
  Receipt Date: 20180424
  Transmission Date: 20180711
  Serious: Yes (Hospitalization)
  Sender: FDA-Public Use
  Company Number: NZ-BAXTER-2018BAX008885

PATIENT
  Age: 48 Year
  Sex: Female

DRUGS (6)
  1. CITRATE BUFFER [Suspect]
     Active Substance: SODIUM CITRATE
     Dosage: DOSE RE-INTRODUCED
     Route: 042
  2. SODIUM CHLORIDE, 0.9%, SOLUTION FOR INFUSION [Suspect]
     Active Substance: SODIUM CHLORIDE
     Dosage: DOSE RE-INTRODUCED
     Route: 042
  3. DICLOFENAC [Suspect]
     Active Substance: DICLOFENAC
     Dosage: DOSE RE-INTRODUCED
     Route: 042
  4. DICLOFENAC [Suspect]
     Active Substance: DICLOFENAC
     Indication: CELLULITIS
     Dosage: VIA ELASTOMERIC
     Route: 042
     Dates: start: 20180111, end: 20180114
  5. SODIUM CHLORIDE, 0.9%, SOLUTION FOR INFUSION [Suspect]
     Active Substance: SODIUM CHLORIDE
     Indication: MEDICATION DILUTION
     Dosage: VIA ELASTOMERIC
     Route: 042
     Dates: start: 20180111, end: 20180114
  6. CITRATE BUFFER [Suspect]
     Active Substance: SODIUM CITRATE
     Indication: MEDICATION DILUTION
     Dosage: VIA ELASTOMERIC
     Route: 042
     Dates: start: 20180111, end: 20180114

REACTIONS (3)
  - Rash pruritic [Recovered/Resolved]
  - Oedema [Unknown]
  - Rash erythematous [Recovered/Resolved]

NARRATIVE: CASE EVENT DATE: 201801
